FAERS Safety Report 8024009-4 (Version None)
Quarter: 2012Q1

REPORT INFORMATION
  Report Type: 
  Country: None (occurrence: None)
  Receive Date: 20120105
  Receipt Date: 20120103
  Transmission Date: 20120608
  Serious: Yes (Hospitalization)
  Sender: FDA-Public Use
  Company Number: FR-PFIZER INC-2012000562

PATIENT
  Age: 18 Year
  Sex: Male

DRUGS (14)
  1. LEVOFLOXACIN [Concomitant]
     Dosage: UNK
  2. DEPAKENE [Suspect]
     Dosage: 400 MG, 3X/DAY
     Route: 042
  3. FLAGYL [Suspect]
     Indication: CLOSTRIDIAL INFECTION
     Dosage: 500 MG, 3X/DAY
     Route: 042
     Dates: start: 20110802, end: 20110805
  4. ROCEPHIN [Suspect]
     Dosage: UNK
     Dates: start: 20110731, end: 20110802
  5. XELODA [Concomitant]
     Indication: RECTAL CANCER
  6. VALPROATE SODIUM [Concomitant]
     Dosage: 500 MG, 2X/DAY
  7. ZOVIRAX [Concomitant]
     Indication: MENINGITIS
     Dosage: 750 MG, 3X/DAY
     Route: 042
  8. LEVOTHYROXINE SODIUM [Concomitant]
     Dosage: 75 A?G AND 25A?G, ONCE  DAY
  9. PIPERACILLIN AND TAZOBACTAM [Suspect]
     Dosage: 2G/250MG
     Route: 042
     Dates: start: 20110731, end: 20110802
  10. AMIKACIN [Concomitant]
     Dosage: 1 G A DAY
     Route: 042
  11. HYDROCORTISONE [Concomitant]
     Dosage: 10 MG, 4X/DAY
  12. XELODA [Concomitant]
     Indication: COLON CANCER
  13. TOPIRAMATE [Concomitant]
     Dosage: 100 MG, 2X/DAY
  14. DEPAKENE [Suspect]
     Dosage: 500 MG, 2X/DAY
     Dates: start: 20110802, end: 20110805

REACTIONS (1)
  - ENCEPHALOPATHY [None]
